FAERS Safety Report 10793696 (Version 1)
Quarter: 2015Q1

REPORT INFORMATION
  Report Type: Spontaneous
  Country: US (occurrence: US)
  Receive Date: 20150213
  Receipt Date: 20150213
  Transmission Date: 20150721
  Serious: Yes (Other)
  Sender: FDA-Public Use
  Company Number: US-GILEAD-2015-0136573

PATIENT
  Sex: Female

DRUGS (1)
  1. HARVONI [Suspect]
     Active Substance: LEDIPASVIR\SOFOSBUVIR
     Indication: PRODUCT USED FOR UNKNOWN INDICATION
     Dosage: UNK
     Route: 065
     Dates: start: 201501, end: 201501

REACTIONS (7)
  - Chest discomfort [Unknown]
  - Throat tightness [Unknown]
  - Chills [Unknown]
  - Cyanosis [Unknown]
  - Hyperhidrosis [Unknown]
  - Confusional state [Unknown]
  - Fatigue [Unknown]
